FAERS Safety Report 10655364 (Version 1)
Quarter: 2014Q4

REPORT INFORMATION
  Report Type: Spontaneous
  Country: US (occurrence: US)
  Receive Date: 20141216
  Receipt Date: 20141216
  Transmission Date: 20150529
  Serious: Yes (Other)
  Sender: FDA-Public Use
  Company Number: US-ABBVIE-14P-163-1317846-00

PATIENT
  Sex: Male

DRUGS (1)
  1. ANDROGEL [Suspect]
     Active Substance: TESTOSTERONE
     Indication: HYPOGONADISM
     Route: 061

REACTIONS (9)
  - Anhedonia [Unknown]
  - Balance disorder [Unknown]
  - Impaired work ability [Unknown]
  - Injury [Unknown]
  - Anxiety [Unknown]
  - Fall [Unknown]
  - Pain [Unknown]
  - Subdural haematoma [Unknown]
  - Cerebrovascular accident [Unknown]
